FAERS Safety Report 15525562 (Version 1)
Quarter: 2018Q4

REPORT INFORMATION
  Report Type: Spontaneous
  Country: ES (occurrence: ES)
  Receive Date: 20181019
  Receipt Date: 20181019
  Transmission Date: 20190205
  Serious: Yes (Life-Threatening)
  Sender: FDA-Public Use
  Company Number: PHHY2018ES131040

PATIENT
  Age: 1 Month
  Sex: Male
  Weight: .9 kg

DRUGS (1)
  1. IBUPROFEN. [Suspect]
     Active Substance: IBUPROFEN
     Indication: PATENT DUCTUS ARTERIOSUS
     Dosage: UNK UNK, Q72H
     Route: 042
     Dates: start: 20170821, end: 20170823

REACTIONS (1)
  - Necrotising colitis [Recovered/Resolved with Sequelae]

NARRATIVE: CASE EVENT DATE: 20170909
